FAERS Safety Report 6303456-2 (Version None)
Quarter: 2009Q3

REPORT INFORMATION
  Report Type: 
  Country: None (occurrence: None)
  Receive Date: 20090810
  Receipt Date: 20090727
  Transmission Date: 20100115
  Serious: Yes (Hospitalization, Other)
  Sender: FDA-Public Use
  Company Number: PHHY2009AU18490

PATIENT
  Sex: Female

DRUGS (1)
  1. CLOZARIL [Suspect]
     Indication: SCHIZOPHRENIA
     Dosage: 100 MG/DAY
     Route: 048

REACTIONS (14)
  - CARDIAC FAILURE CONGESTIVE [None]
  - CHRONIC OBSTRUCTIVE PULMONARY DISEASE [None]
  - DRUG DOSE OMISSION [None]
  - DYSPNOEA [None]
  - EMPHYSEMA [None]
  - ENDOTRACHEAL INTUBATION [None]
  - FATIGUE [None]
  - HAEMOGLOBIN DECREASED [None]
  - ISCHAEMIA [None]
  - MECHANICAL VENTILATION [None]
  - METABOLIC ALKALOSIS [None]
  - NEUTROPHIL COUNT INCREASED [None]
  - OEDEMA PERIPHERAL [None]
  - ORTHOPNOEA [None]
